FAERS Safety Report 12460185 (Version 1)
Quarter: 2016Q2

REPORT INFORMATION
  Report Type: Spontaneous
  Country: US (occurrence: US)
  Receive Date: 20160613
  Receipt Date: 20160613
  Transmission Date: 20160815
  Serious: No
  Sender: FDA-Public Use
  Company Number: US-PFIZER INC-2016292006

PATIENT
  Age: 30 Year
  Sex: Male

DRUGS (1)
  1. SILVADENE [Suspect]
     Active Substance: SILVER SULFADIAZINE
     Indication: DIABETIC FOOT
     Dosage: UNK

REACTIONS (1)
  - Drug ineffective for unapproved indication [Unknown]
